FAERS Safety Report 20570727 (Version 1)
Quarter: 2022Q1

REPORT INFORMATION
  Report Type: Spontaneous
  Country: NL (occurrence: NL)
  Receive Date: 20220309
  Receipt Date: 20220309
  Transmission Date: 20220424
  Serious: Yes (Other)
  Sender: FDA-Public Use
  Company Number: None

PATIENT
  Age: 73 Year
  Sex: Male
  Weight: 64 kg

DRUGS (4)
  1. NAPROXEN [Suspect]
     Active Substance: NAPROXEN
     Indication: Pain
     Dosage: 750 MILLIGRAM DAILY; 3 TIMES A DAY 1 TABLET, STRENGTH : 250MG / BRAND NAME NOT SPECIFIED
     Dates: start: 20210325, end: 20210328
  2. PANTOPRAZOLE [Concomitant]
     Active Substance: PANTOPRAZOLE
     Dosage: 40 MG, PANTOPRAZOL TABLET MSR 40MG / BRAND NAME NOT SPECIFIED, THERAPY START DATE AND END DATE : ASK
  3. PRADAXA [Concomitant]
     Active Substance: DABIGATRAN ETEXILATE MESYLATE
     Dosage: 110 MG, PRADAXA CAPSULE 110MG, THERAPY START DATE AND END DATE : ASKU
  4. METOPROLOL [Concomitant]
     Active Substance: METOPROLOL
     Dosage: 25 MG, METOPROLOL TABLET MGA 25MG (SUCCINATE) / BRAND NAME NOT SPECIFIED, THERAPY START DATE AND END

REACTIONS (3)
  - Oesophageal carcinoma [Unknown]
  - Frequent bowel movements [Recovered/Resolved]
  - Abnormal faeces [Recovered/Resolved]

NARRATIVE: CASE EVENT DATE: 20220210
